FAERS Safety Report 5090822-9 (Version None)
Quarter: 2006Q3

REPORT INFORMATION
  Report Type: 
  Country: None (occurrence: None)
  Receive Date: 20060823
  Receipt Date: 20060811
  Transmission Date: 20061208
  Serious: Yes (Other)
  Sender: FDA-Public Use
  Company Number: HQWYE382111AUG06

PATIENT
  Age: 56 Year
  Sex: Male

DRUGS (10)
  1. AMIODARONE (AMIODARONE, INJECTION) [Suspect]
     Indication: SUPRAVENTRICULAR TACHYCARDIA
     Dosage: INTRAVENOUS
     Route: 042
  2. AMIODARONE HCL [Suspect]
     Indication: SUPRAVENTRICULAR TACHYCARDIA
     Dosage: ORAL
     Route: 048
  3. CLARITHROMYCIN [Suspect]
     Dosage: ORAL
     Route: 048
  4. SIMVASTATIN [Suspect]
  5. ASPIRIN [Concomitant]
  6. CEFTRIAXONE [Concomitant]
  7. FERROUS SULFATE TAB [Concomitant]
  8. LANSOPRAZOLE [Concomitant]
  9. ADENOSINE [Concomitant]
  10. AMLODIPINE [Concomitant]

REACTIONS (6)
  - ALANINE AMINOTRANSFERASE INCREASED [None]
  - BLOOD CREATINE PHOSPHOKINASE INCREASED [None]
  - DRUG INTERACTION [None]
  - LIVER FUNCTION TEST ABNORMAL [None]
  - MOVEMENT DISORDER [None]
  - MYOSITIS [None]
